FAERS Safety Report 20177996 (Version 1)
Quarter: 2021Q4

REPORT INFORMATION
  Report Type: Spontaneous
  Country: HR (occurrence: HR)
  Receive Date: 20211213
  Receipt Date: 20211213
  Transmission Date: 20220304
  Serious: Yes (Other)
  Sender: FDA-Public Use
  Company Number: HR-TEVA-2021-HR-1982104

PATIENT
  Age: 8 Year
  Sex: Female

DRUGS (10)
  1. ASPARAGINASE [Suspect]
     Active Substance: ASPARAGINASE
     Indication: T-cell type acute leukaemia
     Dosage: UKNOWN DOSE AND FREQUENCY
     Route: 042
  2. CYCLOPHOSPHAMIDE [Suspect]
     Active Substance: CYCLOPHOSPHAMIDE
     Indication: T-cell type acute leukaemia
     Dosage: UNKNOWN DOSE AND FREQUENCY
     Route: 042
  3. VINCRISTINE [Suspect]
     Active Substance: VINCRISTINE
     Indication: T-cell type acute leukaemia
     Dosage: UNKNOWN DOSE AND FREQUENCY
     Route: 042
  4. PREDNISONE [Suspect]
     Active Substance: PREDNISONE
     Indication: T-cell type acute leukaemia
     Dosage: UNKNOWN DOSE AND FREQUENCY
     Route: 048
  5. CYTARABINE [Suspect]
     Active Substance: CYTARABINE
     Indication: T-cell type acute leukaemia
     Dosage: UNKNOWN DOSE AND FREQUENCY
     Route: 042
  6. DAUNORUBICIN [Suspect]
     Active Substance: DAUNORUBICIN
     Indication: T-cell type acute leukaemia
     Route: 042
  7. MERCAPTOPURINE [Suspect]
     Active Substance: MERCAPTOPURINE
     Indication: T-cell type acute leukaemia
     Route: 048
  8. LEUCOVORIN [Suspect]
     Active Substance: LEUCOVORIN
     Indication: T-cell type acute leukaemia
     Dosage: UNKNOWN DOSE AND FREQUENCY
     Route: 042
  9. MESNA [Suspect]
     Active Substance: MESNA
     Indication: T-cell type acute leukaemia
     Dosage: UNKNOWN DOSE AND FREQUENCY
     Route: 042
  10. METHOTREXATE [Suspect]
     Active Substance: METHOTREXATE
     Indication: T-cell type acute leukaemia

REACTIONS (6)
  - Pneumonia fungal [Unknown]
  - Neurotoxicity [Unknown]
  - Cerebral ischaemia [Unknown]
  - Sepsis [Unknown]
  - Bone marrow failure [Unknown]
  - Febrile neutropenia [Unknown]
